FAERS Safety Report 8104173-9 (Version None)
Quarter: 2012Q1

REPORT INFORMATION
  Report Type: 
  Country: None (occurrence: None)
  Receive Date: 20120130
  Receipt Date: 20120117
  Transmission Date: 20120608
  Serious: Yes (Hospitalization)
  Sender: FDA-Public Use
  Company Number: FR-VERTEX PHARMACEUTICALS INC.-000000000000000117

PATIENT
  Age: 65 Year
  Sex: Male

DRUGS (4)
  1. RIBAVIRINE [Concomitant]
     Indication: HEPATITIS C
     Dosage: DOSAGE FORM: UNKNOWN
     Route: 065
     Dates: end: 20120101
  2. PEGINTERFERON ALFA-2A [Concomitant]
     Indication: HEPATITIS C
     Dosage: DOSAGE FORM: UNKNOWN
     Route: 065
     Dates: end: 20120101
  3. INCIVO (TELAPREVIR) [Suspect]
     Dosage: DOSAGE FORM: TABLET
     Route: 065
     Dates: end: 20111231
  4. INCIVO (TELAPREVIR) [Suspect]
     Indication: HEPATITIS C
     Dosage: DOSAGE FORM: TABLET
     Route: 065

REACTIONS (7)
  - MALAISE [None]
  - PANCYTOPENIA [None]
  - PYREXIA [None]
  - ASTHENIA [None]
  - RASH [None]
  - GENERAL PHYSICAL HEALTH DETERIORATION [None]
  - DRUG ADMINISTRATION ERROR [None]
